FAERS Safety Report 18147190 (Version 3)
Quarter: 2020Q3

REPORT INFORMATION
  Report Type: Report from Study
  Country: None (occurrence: US)
  Receive Date: 20200814
  Receipt Date: 20200910
  Transmission Date: 20201103
  Serious: Yes (Other)
  Sender: FDA-Public Use
  Company Number: US-ABBVIE-20K-163-3320554-00

PATIENT
  Age: 39 Year
  Sex: Male
  Weight: 99.88 kg

DRUGS (8)
  1. HUMIRA [Suspect]
     Active Substance: ADALIMUMAB
     Route: 058
  2. HUMIRA [Suspect]
     Active Substance: ADALIMUMAB
     Route: 058
  3. HUMIRA [Suspect]
     Active Substance: ADALIMUMAB
     Route: 058
  4. INFLUENZA VACCINE [Suspect]
     Active Substance: INFLUENZA VIRUS VACCINE
     Indication: PRODUCT USED FOR UNKNOWN INDICATION
     Route: 065
     Dates: start: 20190927, end: 20190927
  5. METAXALONE. [Concomitant]
     Active Substance: METAXALONE
     Indication: MUSCLE SPASMS
  6. METAXALONE. [Concomitant]
     Active Substance: METAXALONE
     Indication: MUSCLE RELAXANT THERAPY
  7. HUMIRA [Suspect]
     Active Substance: ADALIMUMAB
     Route: 058
  8. HUMIRA [Suspect]
     Active Substance: ADALIMUMAB
     Indication: COLITIS ULCERATIVE
     Route: 058
     Dates: start: 20190822

REACTIONS (46)
  - Mental disorder [Unknown]
  - Pyrexia [Recovered/Resolved]
  - Dyspnoea [Recovered/Resolved]
  - Abnormal faeces [Unknown]
  - Cough [Recovered/Resolved]
  - Gait inability [Recovering/Resolving]
  - Flatulence [Unknown]
  - Limb deformity [Unknown]
  - Clostridium difficile infection [Unknown]
  - Balance disorder [Unknown]
  - Asthenia [Not Recovered/Not Resolved]
  - Cough [Recovered/Resolved]
  - Blood iron decreased [Not Recovered/Not Resolved]
  - Nausea [Not Recovered/Not Resolved]
  - Blood glucose increased [Not Recovered/Not Resolved]
  - Sleep disorder [Unknown]
  - Stress [Recovering/Resolving]
  - Hypersensitivity [Not Recovered/Not Resolved]
  - Laboratory test abnormal [Unknown]
  - Loss of consciousness [Recovered/Resolved]
  - Lethargy [Recovered/Resolved]
  - Frequent bowel movements [Recovered/Resolved]
  - Faeces discoloured [Unknown]
  - Malabsorption [Unknown]
  - Muscle disorder [Unknown]
  - Muscular weakness [Unknown]
  - Glucose tolerance impaired [Not Recovered/Not Resolved]
  - Colitis ulcerative [Recovered/Resolved]
  - Defaecation urgency [Unknown]
  - Feeling abnormal [Unknown]
  - Fatigue [Unknown]
  - Diarrhoea [Unknown]
  - Dizziness [Recovered/Resolved]
  - Weight increased [Unknown]
  - Sunburn [Not Recovered/Not Resolved]
  - Amnesia [Unknown]
  - Sneezing [Recovered/Resolved]
  - Lyme disease [Unknown]
  - Pelvic deformity [Unknown]
  - Injection site pain [Unknown]
  - Retching [Unknown]
  - Memory impairment [Unknown]
  - Procedural pain [Unknown]
  - Musculoskeletal stiffness [Unknown]
  - Walking aid user [Unknown]
  - Asthenia [Unknown]

NARRATIVE: CASE EVENT DATE: 201909
